FAERS Safety Report 9788022 (Version 1)
Quarter: 2013Q4

REPORT INFORMATION
  Report Type: Spontaneous
  Country: US (occurrence: None)
  Receive Date: 20131227
  Receipt Date: 20131227
  Transmission Date: 20140711
  Serious: Yes (Other)
  Sender: FDA-Public Use
  Company Number: None

PATIENT
  Age: 78 Year
  Sex: Female

DRUGS (1)
  1. IMBRUVICA [Suspect]
     Dosage: 4 CAPSULES QID, ORAL
     Route: 048
     Dates: start: 20131216, end: 20131226

REACTIONS (3)
  - Rash [None]
  - Deafness [None]
  - Rash erythematous [None]
